FAERS Safety Report 8413902-6 (Version None)
Quarter: 2012Q2

REPORT INFORMATION
  Report Type: 
  Country: None (occurrence: None)
  Receive Date: 20120605
  Receipt Date: 20111222
  Transmission Date: 20120825
  Serious: Yes (Other)
  Sender: FDA-Public Use
  Company Number: US-ROCHE-1015090

PATIENT
  Sex: Female
  Weight: 24.6 kg

DRUGS (2)
  1. TOPAMAX [Concomitant]
     Indication: CONVULSION
     Route: 048
  2. NUTROPIN [Suspect]
     Indication: GROWTH HORMONE DEFICIENCY
     Route: 058
     Dates: start: 20111117, end: 20111120

REACTIONS (3)
  - ABNORMAL BEHAVIOUR [None]
  - CONVULSION [None]
  - GRIMACING [None]
